FAERS Safety Report 24257469 (Version 1)
Quarter: 2024Q3

REPORT INFORMATION
  Report Type: Spontaneous
  Country: US (occurrence: US)
  Receive Date: 20240828
  Receipt Date: 20240828
  Transmission Date: 20241017
  Serious: Yes (Hospitalization)
  Sender: STRIDES
  Company Number: US-STRIDES ARCOLAB LIMITED-2024SP010655

PATIENT
  Age: 60 Year
  Sex: Male

DRUGS (5)
  1. HYDROXYZINE HYDROCHLORIDE [Suspect]
     Active Substance: HYDROXYZINE HYDROCHLORIDE
     Indication: Sedation
     Dosage: UNK
     Route: 065
  2. ERYTHROMYCIN [Suspect]
     Active Substance: ERYTHROMYCIN
     Indication: Thermal burns of eye
     Dosage: UNK
     Route: 061
  3. KETAMINE [Suspect]
     Active Substance: KETAMINE
     Indication: Sedation
     Dosage: UNK
     Route: 065
  4. SPIRONOLACTONE [Suspect]
     Active Substance: SPIRONOLACTONE
     Indication: Oliguria
     Dosage: UNK
     Route: 065
  5. LACTATED RINGERS SOLUTION [Concomitant]
     Active Substance: CALCIUM CHLORIDE\POTASSIUM CHLORIDE\SODIUM CHLORIDE\SODIUM LACTATE
     Indication: Thermal burn
     Dosage: 6 LITER (PRIOR TO THE ARRIVAL)
     Route: 065

REACTIONS (1)
  - Porphyria acute [Unknown]
